FAERS Safety Report 11841273 (Version 1)
Quarter: 2015Q4

REPORT INFORMATION
  Report Type: Report from Study
  Country: JP (occurrence: JP)
  Receive Date: 20151216
  Receipt Date: 20151216
  Transmission Date: 20160305
  Serious: Yes (Death)
  Sender: FDA-Public Use
  Company Number: JP-OTSUKA-2015_016456

PATIENT
  Sex: Female
  Weight: 51.5 kg

DRUGS (15)
  1. TOLVAPTAN [Suspect]
     Active Substance: TOLVAPTAN
     Dosage: 7.5 MG, QD
     Route: 048
     Dates: start: 20150618, end: 20150805
  2. L-CARTIN FF TABLETS 100 MG [Concomitant]
     Indication: PROPHYLAXIS
     Dosage: 1500 MG/DAY
     Route: 048
     Dates: start: 20150621, end: 20150805
  3. LAXOBERON [Concomitant]
     Active Substance: SODIUM PICOSULFATE
     Indication: PRODUCT USED FOR UNKNOWN INDICATION
     Dosage: 5 MG/DAY
     Route: 048
     Dates: end: 20150805
  4. CELECOX [Concomitant]
     Active Substance: CELECOXIB
     Indication: PRODUCT USED FOR UNKNOWN INDICATION
     Dosage: 200 MG/DAY
     Route: 048
     Dates: end: 20150805
  5. ALDACTONE A [Concomitant]
     Active Substance: SPIRONOLACTONE
     Indication: FLUID RETENTION
     Dosage: 25 MG/DAY
     Route: 048
     Dates: end: 20150805
  6. NORMAL SALINE [Concomitant]
     Active Substance: SODIUM CHLORIDE
     Indication: PROPHYLAXIS
     Dosage: 50 ML/DAY
     Route: 042
     Dates: end: 20150805
  7. TAKEPRON [Concomitant]
     Active Substance: LANSOPRAZOLE
     Indication: PRODUCT USED FOR UNKNOWN INDICATION
     Dosage: 30 MG/DAY
     Route: 048
     Dates: end: 20150805
  8. SOLDEM [Concomitant]
     Active Substance: DEXTROSE\POTASSIUM CHLORIDE\SODIUM CHLORIDE\SODIUM LACTATE
     Indication: PROPHYLAXIS
     Dosage: 500 ML/DAY
     Route: 042
     Dates: end: 20150805
  9. AMINOLEBAN EN POWDER [Concomitant]
     Active Substance: AMINO ACIDS
     Indication: PRODUCT USED FOR UNKNOWN INDICATION
     Dosage: 150 G/DAY
     Route: 048
     Dates: end: 20150805
  10. URSODEOXYCHOLIC ACID [Concomitant]
     Active Substance: URSODIOL
     Indication: PRODUCT USED FOR UNKNOWN INDICATION
     Dosage: 600 MG/DAY
     Route: 048
     Dates: end: 20150805
  11. LASIX M [Concomitant]
     Active Substance: FUROSEMIDE
     Indication: FLUID RETENTION
     Dosage: 40 MG/DAY
     Route: 048
     Dates: end: 20150805
  12. SOLITA [Concomitant]
     Indication: PROPHYLAXIS
     Dosage: 500 ML/DAY
     Route: 042
     Dates: end: 20150805
  13. TOLVAPTAN [Suspect]
     Active Substance: TOLVAPTAN
     Indication: OEDEMA DUE TO HEPATIC DISEASE
     Dosage: 3.75 MG, QD
     Route: 048
     Dates: start: 20150611, end: 20150617
  14. MAGLAX [Concomitant]
     Active Substance: MAGNESIUM OXIDE
     Indication: PROPHYLAXIS
     Dosage: 990 MG/DAY
     Route: 048
     Dates: end: 20150805
  15. ZOSYN [Concomitant]
     Active Substance: PIPERACILLIN SODIUM\TAZOBACTAM SODIUM
     Indication: PROPHYLAXIS
     Dosage: 4.5 G/DAY
     Route: 042
     Dates: end: 20150805

REACTIONS (1)
  - Hepatic cirrhosis [Fatal]
